FAERS Safety Report 14159679 (Version 2)
Quarter: 2018Q4

REPORT INFORMATION
  Report Type: Spontaneous
  Country: US (occurrence: US)
  Receive Date: 20171106
  Receipt Date: 20181026
  Transmission Date: 20190204
  Serious: Yes (Hospitalization, Other)
  Sender: FDA-Public Use
  Company Number: US-PFIZER INC-2017474202

PATIENT
  Age: 75 Year
  Sex: Female

DRUGS (1)
  1. XELJANZ [Suspect]
     Active Substance: TOFACITINIB CITRATE
     Dosage: 5 MG, 2X/DAY
     Route: 048
     Dates: start: 2013

REACTIONS (11)
  - Haematoma [Unknown]
  - Cardiac failure [Unknown]
  - Rotator cuff syndrome [Unknown]
  - Acute kidney injury [Unknown]
  - Fluid overload [Unknown]
  - Limb injury [Unknown]
  - Anaemia [Unknown]
  - Pneumonia [Unknown]
  - Fall [Unknown]
  - Acute respiratory failure [Unknown]
  - Staphylococcal infection [Unknown]

NARRATIVE: CASE EVENT DATE: 201703
